FAERS Safety Report 16632839 (Version 1)
Quarter: 2019Q3

REPORT INFORMATION
  Report Type: Spontaneous
  Country: US (occurrence: US)
  Receive Date: 20190725
  Receipt Date: 20190725
  Transmission Date: 20191004
  Serious: Yes (Hospitalization, Other)
  Sender: FDA-Public Use
  Company Number: US-HIKMA PHARMACEUTICALS USA INC.-US-H14001-19-04323

PATIENT
  Age: 46 Year
  Sex: Female
  Weight: 107 kg

DRUGS (9)
  1. PREDNISONE. [Suspect]
     Active Substance: PREDNISONE
     Route: 048
     Dates: start: 20180707, end: 20180714
  2. INCB039110/PLACEBO [Suspect]
     Active Substance: ITACITINIB
     Route: 065
     Dates: start: 20180704
  3. LISINOPRIL. [Concomitant]
     Active Substance: LISINOPRIL
     Indication: PRODUCT USED FOR UNKNOWN INDICATION
     Route: 065
     Dates: start: 20180421
  4. PREDNISONE. [Suspect]
     Active Substance: PREDNISONE
     Route: 048
     Dates: start: 20180630, end: 20180706
  5. PREDNISONE. [Suspect]
     Active Substance: PREDNISONE
     Indication: ACUTE GRAFT VERSUS HOST DISEASE
     Route: 048
     Dates: start: 20180621, end: 20180625
  6. PREDNISONE. [Suspect]
     Active Substance: PREDNISONE
     Route: 048
     Dates: start: 20180626, end: 20180629
  7. INCB039110/PLACEBO [Suspect]
     Active Substance: ITACITINIB
     Indication: ACUTE GRAFT VERSUS HOST DISEASE
     Route: 065
     Dates: start: 20180621, end: 20180702
  8. INCB039110/PLACEBO [Suspect]
     Active Substance: ITACITINIB
     Route: 065
     Dates: start: 20180807
  9. AMLODIPINE [Concomitant]
     Active Substance: AMLODIPINE BESYLATE
     Indication: PRODUCT USED FOR UNKNOWN INDICATION
     Route: 065
     Dates: start: 20180707

REACTIONS (12)
  - Diarrhoea [Recovering/Resolving]
  - Cardiomegaly [Unknown]
  - Chest discomfort [Unknown]
  - Atelectasis [Unknown]
  - Nephropathy [Unknown]
  - Pleural effusion [Unknown]
  - Dyspnoea exertional [Recovered/Resolved]
  - Aspiration [Unknown]
  - Back pain [Recovered/Resolved]
  - Tachycardia [Recovering/Resolving]
  - Pericardial effusion [Unknown]
  - Pulmonary oedema [Unknown]

NARRATIVE: CASE EVENT DATE: 20180626
